FAERS Safety Report 6867810-2 (Version None)
Quarter: 2010Q3

REPORT INFORMATION
  Report Type: 
  Country: None (occurrence: None)
  Receive Date: 20100722
  Receipt Date: 20100713
  Transmission Date: 20110219
  Serious: Yes (Other)
  Sender: FDA-Public Use
  Company Number: US-ABBOTT-10P-163-0657080-00

PATIENT
  Age: 70 Year
  Sex: Female

DRUGS (7)
  1. SYNTHROID [Suspect]
     Indication: PRODUCT USED FOR UNKNOWN INDICATION
  2. TRICOR [Suspect]
     Indication: PRODUCT USED FOR UNKNOWN INDICATION
  3. LIPITOR [Suspect]
     Indication: PRODUCT USED FOR UNKNOWN INDICATION
  4. ISOSORBIDE MONONITRATE [Suspect]
     Indication: PRODUCT USED FOR UNKNOWN INDICATION
  5. RAMIPRIL [Suspect]
     Indication: PRODUCT USED FOR UNKNOWN INDICATION
  6. METOPROLOL SUCCINATE [Suspect]
     Indication: PRODUCT USED FOR UNKNOWN INDICATION
  7. ZETIA [Suspect]
     Indication: PRODUCT USED FOR UNKNOWN INDICATION

REACTIONS (2)
  - ARTHRALGIA [None]
  - MYALGIA [None]
